FAERS Safety Report 5654223-4 (Version None)
Quarter: 2008Q1

REPORT INFORMATION
  Report Type: 
  Country: None (occurrence: None)
  Receive Date: 20080305
  Receipt Date: 20080109
  Transmission Date: 20080703
  Serious: Yes (Death, Hospitalization)
  Sender: FDA-Public Use
  Company Number: 2008PL000017

PATIENT
  Sex: Male

DRUGS (3)
  1. LOTRONEX [Suspect]
     Dosage: 1 MG;BID;PO
     Route: 048
     Dates: start: 20070601, end: 20071004
  2. CODEINE SUL TAB [Concomitant]
  3. GEODON [Concomitant]

REACTIONS (2)
  - DIALYSIS [None]
  - DISEASE COMPLICATION [None]
